FAERS Safety Report 5806838-8 (Version None)
Quarter: 2008Q3

REPORT INFORMATION
  Report Type: 
  Country: None (occurrence: None)
  Receive Date: 20080702
  Receipt Date: 20070806
  Transmission Date: 20090109
  Serious: Yes (Other)
  Sender: FDA-Public Use
  Company Number: PROG00207033527

PATIENT
  Age: 27 Year
  Sex: Female
  Weight: 53 kg

DRUGS (4)
  1. PROMETRIUM [Suspect]
     Indication: INFERTILITY
     Dosage: DAILY DOSE
     Dates: start: 20070629, end: 20070710
  2. CLOMID [Suspect]
     Indication: INFERTILITY
     Dosage: 100 MILLIGRAM(S) QD ORAL DAILY DOSE:  100 MILLIGRAM(S)
     Route: 048
     Dates: start: 20070615, end: 20070619
  3. ESTROGENIC SUBSTANCE [Suspect]
     Indication: INFERTILITY
     Dosage: 3 MILLIGRAM(S) BID ORAL DAILY DOSE:  6 MILLIGRAM(S)
     Route: 048
     Dates: start: 20070620, end: 20070624
  4. PRENATAL VITAMINS (PRENATAL VITAMINS) [Concomitant]

REACTIONS (2)
  - ABDOMINAL PAIN LOWER [None]
  - OVARIAN CYST [None]
